FAERS Safety Report 8067125-3 (Version None)
Quarter: 2012Q1

REPORT INFORMATION
  Report Type: 
  Country: None (occurrence: None)
  Receive Date: 20120124
  Receipt Date: 20120109
  Transmission Date: 20120608
  Serious: Yes (Other)
  Sender: FDA-Public Use
  Company Number: US-WATSON-2011-22902

PATIENT
  Age: 17 Year
  Sex: Female

DRUGS (2)
  1. ERYTHROMYCIN [Suspect]
     Dosage: 500 MG, BID
     Route: 048
  2. ERYTHROMYCIN [Suspect]
     Indication: SKIN INFECTION
     Dosage: 500 MG, QID
     Route: 048

REACTIONS (2)
  - RENAL IMPAIRMENT [None]
  - OTOTOXICITY [None]
